FAERS Safety Report 10279106 (Version 2)
Quarter: 2014Q3

REPORT INFORMATION
  Report Type: Spontaneous
  Country: BR (occurrence: BR)
  Receive Date: 20140707
  Receipt Date: 20140707
  Transmission Date: 20150326
  Serious: Yes (Other)
  Sender: FDA-Public Use
  Company Number: BR-PFIZER INC-2013292242

PATIENT
  Sex: Male
  Weight: 3.31 kg

DRUGS (9)
  1. CLOMID [Concomitant]
     Active Substance: CLOMIPHENE CITRATE
     Indication: INFERTILITY
     Dosage: UNK, FOR 7 DAYS
     Route: 064
  2. OMEPRAZOL [Concomitant]
     Active Substance: OMEPRAZOLE
     Indication: GASTROOESOPHAGEAL REFLUX DISEASE
     Route: 064
  3. RANITIDINE [Concomitant]
     Active Substance: RANITIDINE\RANITIDINE HYDROCHLORIDE
     Indication: GASTROOESOPHAGEAL REFLUX DISEASE
     Route: 064
  4. SIMVASTATIN. [Concomitant]
     Active Substance: SIMVASTATIN
     Indication: DYSLIPIDAEMIA
     Route: 064
  5. UTROGESTAN [Concomitant]
     Active Substance: PROGESTERONE
     Indication: COMPLICATION OF PREGNANCY
     Route: 064
  6. PROVERA [Suspect]
     Active Substance: MEDROXYPROGESTERONE ACETATE
     Indication: INFERTILITY
     Dosage: 10MG, 1X/DAY, DURING 10 DAYS OF THE MONTH, PAUSE DURING 3 DAYS
     Route: 064
     Dates: start: 20130725, end: 201310
  7. SERETIDE [Concomitant]
     Active Substance: FLUTICASONE FUROATE\SALMETEROL XINAFOATE
     Indication: BRONCHITIS
     Dosage: 25/250MCG, TWICE A DAY
     Route: 064
  8. PROVERA [Suspect]
     Active Substance: MEDROXYPROGESTERONE ACETATE
     Indication: MENSTRUATION IRREGULAR
     Dosage: 1 DF, 1X/DAY DURING FIVE DAYS IN THE MONTH
     Route: 064
  9. METFORMIN [Concomitant]
     Active Substance: METFORMIN HYDROCHLORIDE
     Indication: POLYCYSTIC OVARIES
     Dosage: 500 MG, 1X/DAY
     Route: 064

REACTIONS (5)
  - Phimosis [Unknown]
  - Varicocele [Unknown]
  - Ventricular septal defect [Unknown]
  - Maternal exposure during pregnancy [Unknown]
  - Talipes [Unknown]
